FAERS Safety Report 7115343-0 (Version None)
Quarter: 2010Q4

REPORT INFORMATION
  Report Type: 
  Country: None (occurrence: None)
  Receive Date: 20101122
  Receipt Date: 20101118
  Transmission Date: 20110411
  Serious: Yes (Hospitalization)
  Sender: FDA-Public Use
  Company Number: RS-BRISTOL-MYERS SQUIBB COMPANY-15388150

PATIENT
  Age: 58 Year
  Sex: Female

DRUGS (1)
  1. MONOPRIL [Suspect]
     Indication: HYPERTENSION
     Route: 048
     Dates: start: 20040101, end: 20100101

REACTIONS (3)
  - APHONIA [None]
  - DRY MOUTH [None]
  - STOMATITIS [None]
